FAERS Safety Report 12475614 (Version 1)
Quarter: 2016Q2

REPORT INFORMATION
  Report Type: Spontaneous
  Country: JP (occurrence: JP)
  Receive Date: 20160617
  Receipt Date: 20160617
  Transmission Date: 20160815
  Serious: Yes (Other)
  Sender: FDA-Public Use
  Company Number: JP-JNJFOC-20160613590

PATIENT
  Age: 54 Year
  Sex: Female
  Weight: 52 kg

DRUGS (7)
  1. LOBU [Suspect]
     Active Substance: LOBUCAVIR
     Indication: PAIN
     Dosage: DAILY DOSE 60 MG
     Route: 048
     Dates: start: 20160501, end: 20160511
  2. XARELTO [Suspect]
     Active Substance: RIVAROXABAN
     Indication: EMBOLISM VENOUS
     Route: 048
     Dates: start: 20160518, end: 20160520
  3. VANCOMYCIN HYDROCHLORIDE. [Suspect]
     Active Substance: VANCOMYCIN HYDROCHLORIDE
     Indication: INFLAMMATION
     Route: 041
     Dates: start: 20160511, end: 20160524
  4. XARELTO [Suspect]
     Active Substance: RIVAROXABAN
     Indication: DEEP VEIN THROMBOSIS
     Route: 048
     Dates: start: 20160511, end: 20160517
  5. WYSTAL [Concomitant]
     Active Substance: CEFOPERAZONE SODIUM\SULBACTAM SODIUM
     Indication: INFLAMMATION
     Route: 041
     Dates: start: 20160507, end: 20160606
  6. XARELTO [Suspect]
     Active Substance: RIVAROXABAN
     Indication: EMBOLISM VENOUS
     Route: 048
     Dates: start: 20160511, end: 20160517
  7. XARELTO [Suspect]
     Active Substance: RIVAROXABAN
     Indication: DEEP VEIN THROMBOSIS
     Route: 048
     Dates: start: 20160518, end: 20160520

REACTIONS (1)
  - Renal impairment [Recovered/Resolved]

NARRATIVE: CASE EVENT DATE: 20160519
